FAERS Safety Report 7141398-3 (Version None)
Quarter: 2010Q4

REPORT INFORMATION
  Report Type: 
  Country: None (occurrence: None)
  Receive Date: 20101203
  Receipt Date: 20101203
  Transmission Date: 20110411
  Serious: No
  Sender: FDA-Public Use
  Company Number: None

PATIENT
  Sex: Male
  Weight: 89.9 kg

DRUGS (2)
  1. LEUPROLIDE ACETATE [Suspect]
     Dosage: 7.5 MG
  2. CASODEX [Suspect]
     Dosage: 2550 MG

REACTIONS (1)
  - ARTHRALGIA [None]
